FAERS Safety Report 6327429-9 (Version None)
Quarter: 2009Q3

REPORT INFORMATION
  Report Type: 
  Country: None (occurrence: None)
  Receive Date: 20090821
  Receipt Date: 20090811
  Transmission Date: 20100115
  Serious: Yes (Other)
  Sender: FDA-Public Use
  Company Number: ADR15172009

PATIENT
  Age: 80 Year
  Sex: Female

DRUGS (2)
  1. PRAVASTATIN [Suspect]
  2. AMITRIPTYLINE [Concomitant]

REACTIONS (3)
  - COLITIS [None]
  - DRUG INTERACTION [None]
  - LARGE INTESTINAL ULCER [None]
